FAERS Safety Report 10930023 (Version 1)
Quarter: 2015Q1

REPORT INFORMATION
  Report Type: Spontaneous
  Country: US (occurrence: None)
  Receive Date: 20150317
  Receipt Date: 20150317
  Transmission Date: 20150721
  Serious: Yes (Hospitalization, Other)
  Sender: FDA-Public Use
  Company Number: US-ZYDUS-007143

PATIENT
  Age: 41 Year
  Sex: Female

DRUGS (1)
  1. OXYCODONE HCL [Suspect]
     Active Substance: OXYCODONE HYDROCHLORIDE
     Indication: PRODUCT USED FOR UNKNOWN INDICATION

REACTIONS (6)
  - Nasal necrosis [None]
  - Nasal abscess [None]
  - Nasal septum disorder [None]
  - Drug abuse [None]
  - Medication error [None]
  - Sinusitis [None]
